FAERS Safety Report 9160587 (Version 1)
Quarter: 2013Q1

REPORT INFORMATION
  Report Type: Spontaneous
  Country: US (occurrence: US)
  Receive Date: 20130313
  Receipt Date: 20130313
  Transmission Date: 20140127
  Serious: No
  Sender: FDA-Public Use
  Company Number: US-ABBOTT-12P-163-1004496-00

PATIENT
  Age: 60 Year
  Sex: Female

DRUGS (4)
  1. DEPAKOTE [Suspect]
     Indication: PRODUCT USED FOR UNKNOWN INDICATION
  2. EMSAM [Suspect]
     Indication: CROHN^S DISEASE
  3. LITHIUM [Suspect]
     Indication: PRODUCT USED FOR UNKNOWN INDICATION
  4. ABILIFY [Suspect]
     Indication: PRODUCT USED FOR UNKNOWN INDICATION

REACTIONS (1)
  - Rash generalised [Unknown]
